FAERS Safety Report 23964969 (Version 1)
Quarter: 2024Q2

REPORT INFORMATION
  Report Type: Spontaneous
  Country: US (occurrence: US)
  Receive Date: 20240612
  Receipt Date: 20240612
  Transmission Date: 20240716
  Serious: Yes (Other)
  Sender: FDA-Public Use
  Company Number: US-STRIDES ARCOLAB LIMITED-2023SP017979

PATIENT
  Age: 82 Year
  Sex: Male

DRUGS (7)
  1. PROPRANOLOL [Suspect]
     Active Substance: PROPRANOLOL HYDROCHLORIDE
     Indication: Hyperthyroidism
     Dosage: 20 MILLIGRAM, QID
     Route: 065
  2. HYDROCORTISONE [Suspect]
     Active Substance: HYDROCORTISONE\HYDROCORTISONE ACETATE
     Indication: Hyperthyroidism
     Dosage: 100 MILLIGRAM, TID
     Route: 065
  3. IODINE\POTASSIUM IODIDE [Suspect]
     Active Substance: IODINE\POTASSIUM IODIDE
     Indication: Hyperthyroidism
     Dosage: 10 DROP, TID
     Route: 065
  4. CHOLESTYRAMINE [Suspect]
     Active Substance: CHOLESTYRAMINE
     Indication: Hyperthyroidism
     Dosage: 4 GRAM, BID
     Route: 065
  5. LITHIUM [Suspect]
     Active Substance: LITHIUM
     Indication: Hyperthyroidism
     Dosage: 300 MILLIGRAM, TID
     Route: 065
  6. METHIMAZOLE [Suspect]
     Active Substance: METHIMAZOLE
     Indication: Hyperthyroidism
     Dosage: 20 MILLIGRAM, TID
     Route: 065
  7. AMIODARONE [Concomitant]
     Active Substance: AMIODARONE
     Indication: Atrial fibrillation
     Dosage: UNK
     Route: 065

REACTIONS (2)
  - Drug ineffective [Unknown]
  - Off label use [Unknown]
